FAERS Safety Report 9011931 (Version 3)
Quarter: 2013Q1

REPORT INFORMATION
  Report Type: Spontaneous
  Country: IT (occurrence: None)
  Receive Date: 20121228
  Receipt Date: 20130128
  Transmission Date: 20140127
  Serious: Yes (Hospitalization)
  Sender: FDA-Public Use
  Company Number: FK201204152

PATIENT
  Age: 44 Year
  Sex: Female

DRUGS (3)
  1. OXALIPLATIN [Suspect]
     Indication: RECTAL CANCER
     Route: 042
     Dates: start: 20120605, end: 20121211
  2. FLUOROURACIL [Concomitant]
  3. LEVOFOLENE (CALCIUM LEVOFOLINATE) [Concomitant]

REACTIONS (7)
  - Cyanosis [None]
  - Feeling hot [None]
  - Paraesthesia [None]
  - Urticaria [None]
  - Paraesthesia [None]
  - Paraesthesia [None]
  - Blood pressure diastolic increased [None]
